FAERS Safety Report 9880741 (Version 1)
Quarter: 2014Q1

REPORT INFORMATION
  Report Type: Spontaneous
  Country: KP (occurrence: None)
  Receive Date: 20140205
  Receipt Date: 20140205
  Transmission Date: 20141002
  Serious: No
  Sender: FDA-Public Use
  Company Number: IMP_07450_2014

PATIENT
  Age: 55 Year
  Sex: Male

DRUGS (1)
  1. SODIUM VALPROATE (SODIUM VALPROATE) [Suspect]
     Indication: EPILEPSY

REACTIONS (6)
  - Convulsion [None]
  - Confusional state [None]
  - Dizziness [None]
  - Nausea [None]
  - Vomiting [None]
  - Inappropriate antidiuretic hormone secretion [None]
